FAERS Safety Report 10739435 (Version 1)
Quarter: 2015Q1

REPORT INFORMATION
  Report Type: Spontaneous
  Country: US (occurrence: US)
  Receive Date: 20150126
  Receipt Date: 20150126
  Transmission Date: 20150721
  Serious: Yes (Hospitalization, Other)
  Sender: FDA-Public Use
  Company Number: US-GLAXOSMITHKLINE-US2015GSK008554

PATIENT
  Sex: Female

DRUGS (1)
  1. BENLYSTA [Suspect]
     Active Substance: BELIMUMAB
     Indication: SYSTEMIC LUPUS ERYTHEMATOSUS
     Dosage: UNK
     Dates: start: 2013, end: 201404

REACTIONS (6)
  - Apparent death [Unknown]
  - Malaise [Unknown]
  - Dysstasia [Unknown]
  - Blood pressure increased [Unknown]
  - Adverse event [Unknown]
  - Adverse reaction [Unknown]

NARRATIVE: CASE EVENT DATE: 2013
